FAERS Safety Report 10248466 (Version 2)
Quarter: 2014Q2

REPORT INFORMATION
  Report Type: Report from Study
  Country: CA (occurrence: CA)
  Receive Date: 20140620
  Receipt Date: 20140620
  Transmission Date: 20141212
  Serious: Yes (Hospitalization)
  Sender: FDA-Public Use
  Company Number: CA-BRISTOL-MYERS SQUIBB COMPANY-20927919

PATIENT
  Age: 50 Year
  Sex: Male

DRUGS (10)
  1. ABATACEPT SUBQ INJECTION 125MG/ML [Suspect]
     Indication: RHEUMATOID ARTHRITIS
     Route: 058
     Dates: start: 20140523
  2. ORENCIA [Suspect]
     Indication: RHEUMATOID ARTHRITIS
     Route: 042
     Dates: start: 20140523
  3. GRAVOL [Concomitant]
  4. CREON [Concomitant]
  5. LEVEMIR [Concomitant]
     Dosage: INJ
     Route: 058
  6. TEMAZEPAM [Concomitant]
  7. AMITRIPTYLINE [Concomitant]
  8. NOVORAPID [Concomitant]
  9. SUCRALFATE [Concomitant]
  10. PANTOLOC [Concomitant]

REACTIONS (5)
  - Abdominal pain [Unknown]
  - Vomiting [Unknown]
  - Nausea [Unknown]
  - Arthralgia [Unknown]
  - Drug ineffective [Unknown]
